FAERS Safety Report 5859351-6 (Version None)
Quarter: 2008Q3

REPORT INFORMATION
  Report Type: 
  Country: None (occurrence: None)
  Receive Date: 20080825
  Receipt Date: 20080814
  Transmission Date: 20090109
  Serious: Yes (Death, Life-Threatening, Hospitalization, Disabling, Other)
  Sender: FDA-Public Use
  Company Number: 100#03#2007-05178

PATIENT
  Age: 86 Year
  Sex: Female

DRUGS (4)
  1. ALENDRONIC ACID (ALENDRONIC ACID) [Suspect]
     Indication: DRUG USE FOR UNKNOWN INDICATION
     Dosage: 70 MG, DAILY, ORAL
     Route: 048
     Dates: start: 20071008, end: 20071012
  2. ADCAL-D3 (CALCIUM CARBONATE, COLECALCIFEROL) [Suspect]
     Indication: DRUG USE FOR UNKNOWN INDICATION
     Dosage: 1 DF TWICE DAILY, ORAL;
     Route: 048
     Dates: start: 20071008, end: 20071018
  3. AMLODIPINE [Concomitant]
  4. ATENOLOL [Concomitant]

REACTIONS (13)
  - ACCIDENTAL OVERDOSE [None]
  - CARDIAC ARREST [None]
  - DRUG TOXICITY [None]
  - GASTRIC ULCER HAEMORRHAGE [None]
  - HAEMATOMA [None]
  - HYPERCALCAEMIA [None]
  - HYPOPHAGIA [None]
  - INAPPROPRIATE SCHEDULE OF DRUG ADMINISTRATION [None]
  - MALAISE [None]
  - PULMONARY OEDEMA [None]
  - RENAL HYPERTENSION [None]
  - RENAL ISCHAEMIA [None]
  - VENTRICULAR HYPERTROPHY [None]
